FAERS Safety Report 5423087-6 (Version None)
Quarter: 2007Q3

REPORT INFORMATION
  Report Type: 
  Country: None (occurrence: None)
  Receive Date: 20070821
  Receipt Date: 20070808
  Transmission Date: 20080115
  Serious: No
  Sender: FDA-Public Use
  Company Number: TPA2007A01677

PATIENT
  Sex: 0

DRUGS (1)
  1. ROZEREM                      (RAMELTON) [Suspect]
     Dosage: 8 MG, PER ORAL
     Route: 048
     Dates: start: 20070708

REACTIONS (1)
  - ACCIDENTAL EXPOSURE [None]
